FAERS Safety Report 25258612 (Version 1)
Quarter: 2025Q2

REPORT INFORMATION
  Report Type: Report from Study
  Country: US (occurrence: US)
  Receive Date: 20250501
  Receipt Date: 20250501
  Transmission Date: 20250716
  Serious: Yes (Death)
  Sender: ABBVIE
  Company Number: US-ABBVIE-6262293

PATIENT
  Age: 89 Year
  Sex: Female

DRUGS (3)
  1. OZURDEX [Suspect]
     Active Substance: DEXAMETHASONE
     Indication: Diabetic retinopathy
     Route: 050
  2. OZURDEX [Suspect]
     Active Substance: DEXAMETHASONE
     Indication: Macular oedema
  3. OZURDEX [Suspect]
     Active Substance: DEXAMETHASONE
     Indication: Type 2 diabetes mellitus

REACTIONS (1)
  - Death [Fatal]
